FAERS Safety Report 5958341-2 (Version None)
Quarter: 2008Q4

REPORT INFORMATION
  Report Type: 
  Country: None (occurrence: None)
  Receive Date: 20081117
  Receipt Date: 20081103
  Transmission Date: 20090506
  Serious: Yes (Other)
  Sender: FDA-Public Use
  Company Number: 2008110007

PATIENT
  Sex: Female

DRUGS (8)
  1. SOMA [Suspect]
     Dosage: ORAL
     Route: 048
  2. NEURONTIN [Suspect]
     Indication: FIBROMYALGIA
  3. ZOLOFT [Suspect]
  4. OXYCONTIN [Suspect]
  5. BENTYL [Suspect]
  6. ASACOL [Suspect]
  7. CELEXA [Concomitant]
  8. LEXAPRO [Concomitant]

REACTIONS (5)
  - BACK DISORDER [None]
  - CONDITION AGGRAVATED [None]
  - DRUG INEFFECTIVE [None]
  - FEELING ABNORMAL [None]
  - SUICIDAL IDEATION [None]
